FAERS Safety Report 5678266-X (Version None)
Quarter: 2008Q1

REPORT INFORMATION
  Report Type: 
  Country: None (occurrence: None)
  Receive Date: 20080319
  Receipt Date: 20080305
  Transmission Date: 20080703
  Serious: No
  Sender: FDA-Public Use
  Company Number: 02100-JPN-07-0747

PATIENT
  Sex: Male

DRUGS (6)
  1. PLETAAL (CILOSTAZOL)(CODE NOT BROKEN) [Suspect]
     Dosage: ORAL
     Route: 048
  2. EPATAT (EPALRESTAT) TABLET [Suspect]
     Dosage: ORAL
     Route: 048
  3. GLYCORAN (METFORMIN HYDROCHLORIDE) TABLET [Suspect]
     Dosage: ORAL
     Route: 048
     Dates: start: 20070712, end: 20070922
  4. SEIBULE (MIGLITOL) TABLET [Concomitant]
  5. JUVELA NICOTINATE (TOCOPHERYL NICOTINATE) [Concomitant]
  6. PRAMEVAN (PRAVASTATIN SODIUM) TABLET [Concomitant]

REACTIONS (3)
  - ALANINE AMINOTRANSFERASE INCREASED [None]
  - ASPARTATE AMINOTRANSFERASE INCREASED [None]
  - HEPATIC FUNCTION ABNORMAL [None]
